FAERS Safety Report 15309503 (Version 1)
Quarter: 2018Q3

REPORT INFORMATION
  Report Type: Spontaneous
  Country: US (occurrence: US)
  Receive Date: 20180812
  Receipt Date: 20180812
  Transmission Date: 20181010
  Serious: Yes (Hospitalization, Other)
  Sender: FDA-Public Use
  Company Number: None

PATIENT
  Age: 72 Year
  Sex: Female
  Weight: 57.6 kg

DRUGS (2)
  1. CO?ETIDRONATE (ETIDRONATE DISODIUM) [Suspect]
     Active Substance: ETIDRONATE DISODIUM
     Indication: OSTEOPOROSIS
  2. CO?ETIDRONATE (ETIDRONATE DISODIUM) [Suspect]
     Active Substance: ETIDRONATE DISODIUM
     Indication: BONE PAIN
     Dosage: ?          OTHER FREQUENCY:1QDX14D, 1QDX46D;?
     Route: 048
     Dates: start: 20140401, end: 20140701

REACTIONS (5)
  - Femur fracture [None]
  - Visual field defect [None]
  - Balance disorder [None]
  - Chest pain [None]
  - Pancytopenia [None]

NARRATIVE: CASE EVENT DATE: 20180701
